FAERS Safety Report 8600420-5 (Version None)
Quarter: 2012Q3

REPORT INFORMATION
  Report Type: 
  Country: None (occurrence: None)
  Receive Date: 20120802
  Receipt Date: 20120723
  Transmission Date: 20120928
  Serious: Yes (Disabling, Other)
  Sender: FDA-Public Use
  Company Number: 2012AP002193

PATIENT
  Age: 75 Year
  Sex: Female

DRUGS (6)
  1. ALBUTEROL SULFATE [Concomitant]
  2. PERINDOPRIL ERBUMINE [Concomitant]
  3. RAMIPRIL [Suspect]
     Indication: ACUTE CORONARY SYNDROME
     Dosage: 7.5 MG; PO
     Route: 048
  4. CALCICHEW D3 (LEKOVIT CA) [Concomitant]
  5. BECLOMETNASONE /00212602/ (BECLOMETASONE DIPROPIONATE) [Concomitant]
  6. BENDROFLUMETHIAZIDE (BENDROFLUMETHIAZIDE) [Concomitant]

REACTIONS (2)
  - PERICARDIAL EFFUSION [None]
  - OEDEMA PERIPHERAL [None]
